FAERS Safety Report 5599171-3 (Version None)
Quarter: 2008Q1

REPORT INFORMATION
  Report Type: 
  Country: None (occurrence: None)
  Receive Date: 20080117
  Receipt Date: 20071010
  Transmission Date: 20080703
  Serious: Yes (Other)
  Sender: FDA-Public Use
  Company Number: DSA_30742_2007

PATIENT
  Age: 78 Year
  Sex: Male

DRUGS (3)
  1. DILTIAZEM HYDROCHLORIDE [Suspect]
     Indication: ATRIAL FIBRILLATION
     Dosage: 25 MG/5ML INTRAVENOUS (NOT OTHERWISE SPECIFIED)
     Route: 042
     Dates: start: 20070928, end: 20070928
  2. DIGOXIN [Suspect]
     Indication: ATRIAL FIBRILLATION
     Dosage: DF INTRAVENOUS (NOT OTHERWISE SPECIFIED)
     Route: 042
     Dates: start: 20070928, end: 20070928
  3. AMIODARONE [Suspect]
     Indication: ATRIAL FIBRILLATION
     Dosage: DF INTRAVENOUS (NOT OTHERWISDE SPECIFIED)
     Route: 042
     Dates: start: 20070928, end: 20070928

REACTIONS (4)
  - BLOOD ALBUMIN DECREASED [None]
  - CARDIAC FAILURE CONGESTIVE [None]
  - PULMONARY OEDEMA [None]
  - TROPONIN I INCREASED [None]
